FAERS Safety Report 22052690 (Version 2)
Quarter: 2023Q1

REPORT INFORMATION
  Report Type: Report from Study
  Country: FR (occurrence: FR)
  Receive Date: 20230302
  Receipt Date: 20230327
  Transmission Date: 20230418
  Serious: Yes (Hospitalization, Other)
  Sender: FDA-Public Use
  Company Number: FR-002147023-NVSC2022FR159417

PATIENT
  Age: 6 Year
  Sex: Female
  Weight: 17 kg

DRUGS (15)
  1. TOPOTECAN [Suspect]
     Active Substance: TOPOTECAN HYDROCHLORIDE
     Indication: Neuroblastoma recurrent
     Dosage: 0.75 MG/M2 (MAXIMUM 5 DAYS EVERY 21 DAYS/ LAST DOSE WAS ON 16 JUN 2022)
     Route: 042
     Dates: start: 20220504, end: 20220616
  2. VENETOCLAX [Suspect]
     Active Substance: VENETOCLAX
     Indication: Neoplasm recurrence
     Dosage: 250 MG, QD (LAST DOSE WAS ON 04 MAY 2022)/(MAXIMUM 5 DAYS)
     Route: 048
     Dates: start: 20220502, end: 20220704
  3. VENETOCLAX [Suspect]
     Active Substance: VENETOCLAX
     Indication: Recurrent cancer
  4. TEMOZOLOMIDE [Suspect]
     Active Substance: TEMOZOLOMIDE
     Indication: Neoplasm recurrence
     Dosage: 70 MG/M2 DAILY
     Route: 042
     Dates: start: 20220504
  5. TEMOZOLOMIDE [Suspect]
     Active Substance: TEMOZOLOMIDE
     Indication: Neuroblastoma
  6. TEMOZOLOMIDE [Suspect]
     Active Substance: TEMOZOLOMIDE
     Indication: Recurrent cancer
  7. MELATONIN [Concomitant]
     Active Substance: MELATONIN
     Indication: Sleep disorder
     Dosage: 2 MG, QD (2 MG, 1 IN 1 D)
     Route: 048
     Dates: start: 202012
  8. BACTRIM [Concomitant]
     Active Substance: SULFAMETHOXAZOLE\TRIMETHOPRIM
     Indication: Prophylaxis
     Dosage: 400 MG, Q3W
     Route: 048
     Dates: start: 201912
  9. ATARAX [Concomitant]
     Active Substance: HYDROXYZINE HYDROCHLORIDE
     Indication: Sleep disorder
     Dosage: 25 MG, QD
     Route: 048
     Dates: start: 20220504
  10. ATARAX [Concomitant]
     Active Substance: HYDROXYZINE HYDROCHLORIDE
     Indication: Sleep disorder therapy
  11. EMLA [Concomitant]
     Active Substance: LIDOCAINE\PRILOCAINE
     Indication: Pain prophylaxis
     Dosage: UNK, PRN (1 AS REQUIRED, PATCH)
     Route: 061
     Dates: start: 2019
  12. LIDOCAINE [Concomitant]
     Active Substance: LIDOCAINE
     Indication: Pain prophylaxis
     Dosage: 1 DOSAGE FORM, PRN (1 PATCH, AS REQUIRED)
     Route: 065
     Dates: start: 2019
  13. ALPRAZOLAM [Concomitant]
     Active Substance: ALPRAZOLAM
     Indication: Sleep disorder
     Dosage: 25 MG (25 MG, 1 IN 1 D)
     Route: 065
     Dates: start: 20220504
  14. ALPRAZOLAM [Concomitant]
     Active Substance: ALPRAZOLAM
     Indication: Anxiolytic therapy
  15. SULFAMETHOXAZOLE AND TRIMETHOPRIM [Concomitant]
     Active Substance: SULFAMETHOXAZOLE\TRIMETHOPRIM
     Indication: Prophylaxis
     Dosage: 400 MG, TIW
     Route: 065
     Dates: start: 201912

REACTIONS (9)
  - Parainfluenzae virus infection [Recovered/Resolved]
  - Diarrhoea [Unknown]
  - Neutropenia [Unknown]
  - Pyrexia [Unknown]
  - Cough [Unknown]
  - Metapneumovirus infection [Recovered/Resolved]
  - Anaemia [Unknown]
  - Orbital oedema [Unknown]
  - Product use in unapproved indication [Unknown]

NARRATIVE: CASE EVENT DATE: 20200424
